FAERS Safety Report 10285252 (Version 1)
Quarter: 2014Q3

REPORT INFORMATION
  Report Type: Spontaneous
  Country: GB (occurrence: GB)
  Receive Date: 20140708
  Receipt Date: 20140708
  Transmission Date: 20150326
  Serious: Yes (Death)
  Sender: FDA-Public Use
  Company Number: GB-WATSON-2014-14457

PATIENT
  Age: 36 Year
  Sex: Male

DRUGS (8)
  1. ZOPICLONE [Concomitant]
     Active Substance: ZOPICLONE
     Indication: INSOMNIA
     Dosage: 7.5 MG, DAILY - STARTED BEFORE NOVEMBER 2013.
     Route: 048
     Dates: end: 20140606
  2. BENDROFLUMETHIAZIDE [Concomitant]
     Active Substance: BENDROFLUMETHIAZIDE
     Indication: HYPERTENSION
     Dosage: 2.5 MG, DAILY - STARTED BEFORE NOVEMBER 2013.
     Route: 048
     Dates: end: 20140606
  3. DIAZEPAM. [Concomitant]
     Active Substance: DIAZEPAM
     Indication: ANXIETY
     Dosage: 10 MG, DAILY - STARTED BEFORE NOVEMBER 2013.
     Route: 048
     Dates: end: 20140606
  4. AMISULPRIDE (UNKNOWN) [Suspect]
     Active Substance: AMISULPRIDE
     Indication: SCHIZOPHRENIA
     Dosage: 450 MG, UNKNOWN - STARTED BEFORE NOVEMBER 2013
     Route: 048
     Dates: end: 20140606
  5. CHLORPROMAZINE HYDROCHLORIDE (WATSON LABORATORIES) [Suspect]
     Active Substance: CHLORPROMAZINE HYDROCHLORIDE
     Indication: SCHIZOPHRENIA
     Dosage: 100 MG, UNKNOWN
     Route: 048
     Dates: start: 20140501, end: 20140606
  6. PROCYCLIDINE [Concomitant]
     Active Substance: PROCYCLIDINE
     Indication: EXTRAPYRAMIDAL DISORDER
     Dosage: 5 MG, DAILY - STARTED BEFORE NOVEMBER 2013.
     Route: 048
     Dates: end: 20140606
  7. LISINOPRIL. [Concomitant]
     Active Substance: LISINOPRIL
     Indication: HYPERTENSION
     Dosage: 5 MG, DAILY - STARTED BEFORE NOVEMBER 2013.
     Route: 048
     Dates: end: 20140606
  8. OMEPRAZOLE. [Concomitant]
     Active Substance: OMEPRAZOLE
     Indication: PRODUCT USED FOR UNKNOWN INDICATION
     Dosage: 20 MG, DAILY - STARTED BEFORE NOVEMBER 2013.
     Route: 048
     Dates: end: 20140606

REACTIONS (1)
  - Sudden death [Fatal]

NARRATIVE: CASE EVENT DATE: 20140606
